FAERS Safety Report 7305138-7 (Version None)
Quarter: 2011Q1

REPORT INFORMATION
  Report Type: 
  Country: None (occurrence: None)
  Receive Date: 20110222
  Receipt Date: 20110215
  Transmission Date: 20110831
  Serious: Yes (Hospitalization)
  Sender: FDA-Public Use
  Company Number: US-SANOFI-AVENTIS-2010SA063701

PATIENT
  Sex: Female

DRUGS (1)
  1. MULTAQ [Suspect]
     Route: 065

REACTIONS (4)
  - PLEURAL EFFUSION [None]
  - SEROSITIS [None]
  - PERICARDIAL EFFUSION [None]
  - HEPATIC ENZYME INCREASED [None]
